FAERS Safety Report 5145962-2 (Version None)
Quarter: 2006Q4

REPORT INFORMATION
  Report Type: 
  Country: None (occurrence: None)
  Receive Date: 20061108
  Receipt Date: 20061026
  Transmission Date: 20070319
  Serious: Yes (Hospitalization)
  Sender: FDA-Public Use
  Company Number: PHRM2006FR02952

PATIENT
  Age: 74 Year
  Sex: Female

DRUGS (1)
  1. AREDIA [Suspect]
     Indication: OSTEOPOROSIS
     Dosage: 90 MG OF AREDIA IN 500 ML OF SOLUTION
     Dates: start: 20061009, end: 20061009

REACTIONS (10)
  - ARRHYTHMIA [None]
  - ATRIAL FIBRILLATION [None]
  - BREATH SOUNDS ABNORMAL [None]
  - DILATATION ATRIAL [None]
  - DYSPNOEA [None]
  - HEPATOJUGULAR REFLUX [None]
  - LIP DISCOLOURATION [None]
  - OEDEMA PERIPHERAL [None]
  - PULMONARY HYPERTENSION [None]
  - TACHYCARDIA [None]
